FAERS Safety Report 22297314 (Version 1)
Quarter: 2023Q2

REPORT INFORMATION
  Report Type: Spontaneous
  Country: IT (occurrence: IT)
  Receive Date: 20230509
  Receipt Date: 20230509
  Transmission Date: 20230722
  Serious: Yes (Hospitalization, Other)
  Sender: FDA-Public Use
  Company Number: IT-ALKEM LABORATORIES LIMITED-IT-ALKEM-2023-04927

PATIENT
  Age: 42 Year
  Sex: Female

DRUGS (3)
  1. LIDOCAINE [Suspect]
     Active Substance: LIDOCAINE
     Indication: Back pain
     Dosage: UNK (INJECTION)
     Route: 037
  2. ACETYLCARNITINE [Suspect]
     Active Substance: ACETYLCARNITINE
     Indication: Back pain
     Dosage: UNK
     Route: 037
  3. THIOCOLCHICOSIDE [Suspect]
     Active Substance: THIOCOLCHICOSIDE
     Indication: Back pain
     Dosage: UNK
     Route: 037

REACTIONS (6)
  - Seizure [Recovering/Resolving]
  - Coma [Unknown]
  - Incorrect route of product administration [Unknown]
  - Mydriasis [Unknown]
  - Acidosis [Unknown]
  - Trismus [Unknown]
